FAERS Safety Report 5708541-1 (Version None)
Quarter: 2008Q2

REPORT INFORMATION
  Report Type: 
  Country: None (occurrence: None)
  Receive Date: 20080417
  Receipt Date: 20080407
  Transmission Date: 20081010
  Serious: Yes (Other)
  Sender: FDA-Public Use
  Company Number: MY-PFIZER INC-2008031121

PATIENT
  Age: 55 Year
  Sex: Male

DRUGS (1)
  1. UNASYN [Suspect]
     Route: 042

REACTIONS (1)
  - EPILEPSY [None]
